FAERS Safety Report 13175730 (Version 1)
Quarter: 2017Q1

REPORT INFORMATION
  Report Type: Report from Study
  Country: CA (occurrence: CA)
  Receive Date: 20170201
  Receipt Date: 20170201
  Transmission Date: 20170428
  Serious: Yes (Other)
  Sender: FDA-Public Use
  Company Number: CA-JNJFOC-20170125561

PATIENT
  Age: 54 Year
  Sex: Male

DRUGS (1)
  1. STELARA [Suspect]
     Active Substance: USTEKINUMAB
     Indication: PSORIASIS
     Route: 058
     Dates: start: 2006

REACTIONS (5)
  - Secretion discharge [Unknown]
  - Rash pustular [Unknown]
  - Wound [Not Recovered/Not Resolved]
  - Limb injury [Unknown]
  - Erythema [Unknown]

NARRATIVE: CASE EVENT DATE: 20170112
